FAERS Safety Report 21457587 (Version 1)
Quarter: 2022Q4

REPORT INFORMATION
  Report Type: Report from Study
  Country: US (occurrence: US)
  Receive Date: 20221014
  Receipt Date: 20221014
  Transmission Date: 20230113
  Serious: Yes (Other)
  Sender: FDA-Public Use
  Company Number: US-ABBVIE-4154290

PATIENT
  Sex: Female

DRUGS (1)
  1. HUMIRA [Suspect]
     Active Substance: ADALIMUMAB
     Indication: Rheumatoid arthritis
     Route: 058

REACTIONS (6)
  - Metabolic surgery [Unknown]
  - Musculoskeletal stiffness [Unknown]
  - Elbow operation [Unknown]
  - Trigger finger [Unknown]
  - Arthralgia [Unknown]
  - Hip arthroplasty [Unknown]
